FAERS Safety Report 18700259 (Version 1)
Quarter: 2021Q1

REPORT INFORMATION
  Report Type: Spontaneous
  Country: US (occurrence: US)
  Receive Date: 20210104
  Receipt Date: 20210104
  Transmission Date: 20210419
  Serious: No
  Sender: FDA-Public Use
  Company Number: None

PATIENT
  Age: 86 Year
  Sex: Male
  Weight: 74.84 kg

DRUGS (12)
  1. CALCITRIOL. [Concomitant]
     Active Substance: CALCITRIOL
  2. METOPROLOL. [Concomitant]
     Active Substance: METOPROLOL
  3. NITROGLYCERN [Concomitant]
  4. BETAHMETHASONE VALERATE [Concomitant]
  5. PAROEX [Suspect]
     Active Substance: CHLORHEXIDINE GLUCONATE
     Indication: PRODUCT USED FOR UNKNOWN INDICATION
     Dosage: ?          QUANTITY:1/2 OZ;/ RINSE INSIDE OF MOUTH AFTER BRUSHING?
     Route: 048
     Dates: end: 20201106
  6. AMLODIPINE [Concomitant]
     Active Substance: AMLODIPINE BESYLATE
  7. PEPCID [Concomitant]
     Active Substance: FAMOTIDINE
  8. PLAVIX [Concomitant]
     Active Substance: CLOPIDOGREL BISULFATE
  9. TACROLIMUS. [Concomitant]
     Active Substance: TACROLIMUS
  10. TAMSULOSIN [Concomitant]
     Active Substance: TAMSULOSIN
  11. LASIX [Concomitant]
     Active Substance: FUROSEMIDE
  12. PREVAGEN [Concomitant]
     Active Substance: DIETARY SUPPLEMENT

REACTIONS (2)
  - Gingivitis [None]
  - Gingival pain [None]
